FAERS Safety Report 9462265 (Version 4)
Quarter: 2013Q4

REPORT INFORMATION
  Report Type: Spontaneous
  Country: US (occurrence: None)
  Receive Date: 20130813
  Receipt Date: 20131205
  Transmission Date: 20140711
  Serious: Yes (Death, Hospitalization)
  Sender: FDA-Public Use
  Company Number: 150271

PATIENT
  Age: 57 Year
  Sex: Female
  Weight: 50 kg

DRUGS (1)
  1. LEUCOVORIN CALCIUM [Suspect]
     Indication: COLORECTAL CANCER METASTATIC
     Dosage: 400MG/M2 ON DAY ONE EVERY 14 DAYS
     Dates: start: 20130617, end: 20130715

REACTIONS (9)
  - Pyrexia [None]
  - Diarrhoea [None]
  - Candida test positive [None]
  - Culture stool positive [None]
  - Clostridium difficile infection [None]
  - Gamma-glutamyltransferase increased [None]
  - Blood alkaline phosphatase increased [None]
  - Blood bilirubin increased [None]
  - Blood glucose increased [None]
